FAERS Safety Report 25348113 (Version 1)
Quarter: 2025Q2

REPORT INFORMATION
  Report Type: Spontaneous
  Country: US (occurrence: US)
  Receive Date: 20250522
  Receipt Date: 20250522
  Transmission Date: 20250716
  Serious: Yes (Other)
  Sender: COOPERSURGICAL
  Company Number: US-COOPERSURGICAL, INC.-2025CPS004015

PATIENT
  Age: 20 Year
  Sex: Female
  Weight: 86.168 kg

DRUGS (4)
  1. PARAGARD T 380A [Suspect]
     Active Substance: COPPER
     Indication: Contraception
     Route: 015
     Dates: start: 20150213
  2. LAMICTAL [Concomitant]
     Active Substance: LAMOTRIGINE
     Dates: start: 20090101, end: 202405
  3. VYVANSE [Concomitant]
     Active Substance: LISDEXAMFETAMINE DIMESYLATE
     Dates: start: 20120101, end: 202405
  4. VRAYLAR [Concomitant]
     Active Substance: CARIPRAZINE
     Dates: start: 201912, end: 202312

REACTIONS (10)
  - Reproductive complication associated with device [Unknown]
  - Device breakage [Recovered/Resolved]
  - Foreign body in reproductive tract [Recovered/Resolved]
  - Complication of device removal [Recovered/Resolved]
  - Embedded device [Recovered/Resolved]
  - Emotional disorder [Unknown]
  - Procedural pain [Recovered/Resolved]
  - Anxiety [Unknown]
  - Psychological trauma [Unknown]
  - Fear [Unknown]

NARRATIVE: CASE EVENT DATE: 20150213
